FAERS Safety Report 19428407 (Version 2)
Quarter: 2021Q2

REPORT INFORMATION
  Report Type: Other
  Country: BE (occurrence: BE)
  Receive Date: 20210616
  Receipt Date: 20210628
  Transmission Date: 20210717
  Serious: Yes (Death)
  Sender: FDA-Public Use
  Company Number: BE-CELLTRION INC.-2021BE008031

PATIENT

DRUGS (3)
  1. RITUXIMAB (UNKNOWN) [Suspect]
     Active Substance: RITUXIMAB
     Indication: PROLYMPHOCYTIC LEUKAEMIA
     Dosage: UNK
  2. RITUXIMAB (UNKNOWN) [Suspect]
     Active Substance: RITUXIMAB
     Indication: CHRONIC LYMPHOCYTIC LEUKAEMIA
     Dosage: DOSE: 1, EVERY 4 WEEKS (PHARMACEUTICAL DOSE FORM: INTRAVENOUS INFUSION)
     Route: 042
     Dates: start: 20200812, end: 20200812
  3. VENCLYXTO [Suspect]
     Active Substance: VENETOCLAX
     Indication: CHRONIC LYMPHOCYTIC LEUKAEMIA
     Dosage: 400 MG, QD
     Route: 048
     Dates: start: 20200812, end: 20201012

REACTIONS (5)
  - Prolymphocytic leukaemia [Fatal]
  - Fatigue [Fatal]
  - Off label use [Unknown]
  - Asthenia [Fatal]
  - Chronic lymphocytic leukaemia [Fatal]

NARRATIVE: CASE EVENT DATE: 20201013
